FAERS Safety Report 10202500 (Version 3)
Quarter: 2014Q3

REPORT INFORMATION
  Report Type: Report from Study
  Country: US (occurrence: US)
  Receive Date: 20140528
  Receipt Date: 20140709
  Transmission Date: 20150326
  Serious: Yes (Hospitalization)
  Sender: FDA-Public Use
  Company Number: US-SA-2014SA065809

PATIENT
  Age: 73 Year
  Sex: Female
  Weight: 48.98 kg

DRUGS (1)
  1. AUBAGIO [Suspect]
     Active Substance: TERIFLUNOMIDE
     Indication: MULTIPLE SCLEROSIS
     Route: 048
     Dates: start: 20130513

REACTIONS (2)
  - Pneumonia [Not Recovered/Not Resolved]
  - Aspiration [Not Recovered/Not Resolved]
